FAERS Safety Report 7418344-8 (Version None)
Quarter: 2011Q2

REPORT INFORMATION
  Report Type: 
  Country: None (occurrence: None)
  Receive Date: 20110415
  Receipt Date: 20110408
  Transmission Date: 20111010
  Serious: Yes (Death)
  Sender: FDA-Public Use
  Company Number: A0921946A

PATIENT
  Age: 53 Year
  Sex: Female

DRUGS (8)
  1. INSULIN [Concomitant]
     Route: 065
  2. MILRINONE [Concomitant]
     Route: 065
  3. VASOPRESSIN [Concomitant]
     Route: 065
  4. ADRENALIN IN OIL INJ [Concomitant]
     Route: 065
  5. FLOLAN [Suspect]
     Route: 055
  6. FENTANYL [Concomitant]
     Route: 065
  7. LEVOPHED [Concomitant]
     Route: 065
  8. MIDAZOLAM [Concomitant]
     Route: 065

REACTIONS (4)
  - OFF LABEL USE [None]
  - MULTI-ORGAN FAILURE [None]
  - HYPOTENSION [None]
  - PNEUMOTHORAX [None]
